FAERS Safety Report 5856286-X (Version None)
Quarter: 2008Q3

REPORT INFORMATION
  Report Type: 
  Country: None (occurrence: None)
  Receive Date: 20080825
  Receipt Date: 20080821
  Transmission Date: 20090109
  Serious: Yes (Life-Threatening, Hospitalization)
  Sender: FDA-Public Use
  Company Number: B0533951A

PATIENT
  Age: 23 Year
  Sex: Female
  Weight: 55 kg

DRUGS (17)
  1. ALKERAN [Suspect]
     Indication: STEM CELL TRANSPLANT
     Route: 042
     Dates: start: 20070803, end: 20070804
  2. FLUDARA [Suspect]
     Indication: STEM CELL TRANSPLANT
     Route: 042
     Dates: start: 20070731, end: 20070804
  3. METHOTREXATE [Suspect]
     Route: 065
     Dates: start: 20070807, end: 20070812
  4. PROGRAF [Suspect]
     Route: 065
  5. CRAVIT [Concomitant]
     Route: 048
     Dates: start: 20070725
  6. DIFLUCAN [Concomitant]
     Route: 048
     Dates: start: 20070725
  7. URSO 250 [Concomitant]
     Route: 048
     Dates: start: 20070725
  8. ZOVIRAX [Concomitant]
     Route: 048
     Dates: start: 20070729
  9. LANSOPRAZOLE [Concomitant]
     Route: 048
     Dates: start: 20070801, end: 20070804
  10. ZYRTEC [Concomitant]
     Route: 048
     Dates: start: 20070725
  11. DEPAS [Concomitant]
     Route: 048
     Dates: start: 20070725
  12. PRIMPERAN INJ [Concomitant]
     Route: 048
     Dates: start: 20070728
  13. FLUMARIN [Concomitant]
     Dates: start: 20070801, end: 20070803
  14. FIRSTCIN [Concomitant]
     Dates: start: 20070804, end: 20070808
  15. TARGOCID [Concomitant]
     Dates: start: 20070804, end: 20070813
  16. FAMOTIDINE [Concomitant]
     Dates: start: 20070804, end: 20070808
  17. PROGRAF [Concomitant]
     Route: 065
     Dates: start: 20070805, end: 20080215

REACTIONS (8)
  - ABDOMINAL PAIN [None]
  - ASCITES [None]
  - GENERALISED OEDEMA [None]
  - HEPATOMEGALY [None]
  - LIVER DISORDER [None]
  - RENAL FAILURE [None]
  - VENOOCCLUSIVE LIVER DISEASE [None]
  - WEIGHT INCREASED [None]
